FAERS Safety Report 8257880-1 (Version None)
Quarter: 2012Q1

REPORT INFORMATION
  Report Type: 
  Country: None (occurrence: None)
  Receive Date: 20111211
  Receipt Date: 20111003
  Transmission Date: 20120608
  Serious: No
  Sender: FDA-Public Use
  Company Number: 201110007

PATIENT
  Age: 60 Year
  Sex: Male
  Weight: 72.5755 kg

DRUGS (1)
  1. XIAFLEX (CLOSTRIDIAL COLLAGENASE) [Suspect]
     Indication: DUPUYTREN'S CONTRACTURE
     Dosage: 1 IN 1 D, INTRALESIONAL
     Route: 026
     Dates: start: 20110930, end: 20110930

REACTIONS (5)
  - LYMPH NODE PAIN [None]
  - CONTUSION [None]
  - DRUG ADMINISTRATION ERROR [None]
  - PAIN IN EXTREMITY [None]
  - SWELLING [None]
